FAERS Safety Report 20141845 (Version 3)
Quarter: 2022Q1

REPORT INFORMATION
  Report Type: Report from Study
  Country: BE (occurrence: None)
  Receive Date: 20211202
  Receipt Date: 20220225
  Transmission Date: 20220423
  Serious: Yes (Other)
  Sender: FDA-Public Use
  Company Number: BE-Merck Healthcare KGaA-9283313

PATIENT
  Sex: Female

DRUGS (2)
  1. MAVENCLAD [Suspect]
     Active Substance: CLADRIBINE
     Indication: Multiple sclerosis
     Dosage: YEAR ONE MONTH ONE THERAPY: TWO DFS ON DAYS 1 TO 3 AND ONE DF ON DAYS 4 TO 5
     Route: 048
     Dates: start: 20210820
  2. MAVENCLAD [Suspect]
     Active Substance: CLADRIBINE
     Dosage: YEAR ONE MONTH TWO THERAPY: TWO DFS ON DAYS 1 TO 2 AND ONE DF ON DAYS 3 TO 5
     Route: 048
     Dates: start: 20210920

REACTIONS (1)
  - White blood cell count decreased [Recovering/Resolving]
